FAERS Safety Report 7458589-4 (Version None)
Quarter: 2011Q2

REPORT INFORMATION
  Report Type: 
  Country: None (occurrence: None)
  Receive Date: 20110504
  Receipt Date: 20110428
  Transmission Date: 20111010
  Serious: Yes (Life-Threatening, Hospitalization, Disabling, Other)
  Sender: FDA-Public Use
  Company Number: DK-PFIZER INC-DK-WYE-G01670908

PATIENT
  Age: 82 Year
  Sex: Male

DRUGS (4)
  1. ENBREL [Suspect]
     Indication: RHEUMATOID ARTHRITIS
     Dosage: 50 MG, WEEKLY
     Route: 058
     Dates: start: 20071220, end: 20080212
  2. METHOTREXATE [Suspect]
     Indication: RHEUMATOID ARTHRITIS
     Dosage: UNK
     Route: 065
     Dates: start: 20041001, end: 20080401
  3. SULFASALAZINE [Suspect]
     Dosage: UNK
     Route: 065
     Dates: start: 20010101, end: 20080101
  4. ENBREL [Suspect]
     Dosage: 50 MG, WEEKLY
     Route: 065

REACTIONS (4)
  - PULMONARY FIBROSIS [None]
  - PYREXIA [None]
  - ACUTE INTERSTITIAL PNEUMONITIS [None]
  - ACUTE PHASE REACTION [None]
